FAERS Safety Report 5577334-0 (Version None)
Quarter: 2007Q4

REPORT INFORMATION
  Report Type: 
  Country: None (occurrence: None)
  Receive Date: 20071130
  Receipt Date: 20070724
  Transmission Date: 20080405
  Serious: No
  Sender: FDA-Public Use
  Company Number: US200707006051

PATIENT
  Age: 72 Year
  Sex: Female

DRUGS (1)
  1. BYETTA [Suspect]
     Dosage: 10 UG, 2/D, SUBCUTANEOUS : 10 UG, DAILY (1/D), SUBCUTANEOUS
     Route: 058
     Dates: start: 20070701, end: 20070722

REACTIONS (2)
  - BLOOD GLUCOSE DECREASED [None]
  - PRESYNCOPE [None]
